FAERS Safety Report 23990810 (Version 1)
Quarter: 2024Q2

REPORT INFORMATION
  Report Type: Spontaneous
  Country: RS (occurrence: None)
  Receive Date: 20240619
  Receipt Date: 20240619
  Transmission Date: 20240716
  Serious: Yes (Other)
  Sender: FDA-Public Use
  Company Number: 2024A139295

PATIENT
  Age: 65 Year
  Sex: Female

DRUGS (20)
  1. IMFINZI [Suspect]
     Active Substance: DURVALUMAB
     Indication: Neoplasm malignant
     Dosage: UNKNOWN
     Route: 042
  2. CISPLATIN [Concomitant]
     Active Substance: CISPLATIN
  3. VEPESID [Concomitant]
     Active Substance: ETOPOSIDE
  4. PRONISON [Concomitant]
     Active Substance: PREDNISONE
  5. ONDANSETRON HYDROCHLORIDE [Concomitant]
     Active Substance: ONDANSETRON HYDROCHLORIDE
  6. FENTANYL [Concomitant]
     Active Substance: FENTANYL\FENTANYL CITRATE
  7. BISOPROLOL FUMARATE [Concomitant]
     Active Substance: BISOPROLOL FUMARATE
  8. SPIRONOLACTONE [Concomitant]
     Active Substance: SPIRONOLACTONE
  9. XARELTO [Concomitant]
     Active Substance: RIVAROXABAN
  10. LASIX [Concomitant]
     Active Substance: FUROSEMIDE
  11. GLUCOPHAGE [Concomitant]
     Active Substance: METFORMIN HYDROCHLORIDE
  12. CONTROLOC [Concomitant]
     Active Substance: PANTOPRAZOLE SODIUM
  13. ACETAMINOPHEN [Concomitant]
     Active Substance: ACETAMINOPHEN
  14. OLODATEROL HYDROCHLORIDE\TIOTROPIUM BROMIDE MONOHYDRATE [Concomitant]
     Active Substance: OLODATEROL HYDROCHLORIDE\TIOTROPIUM BROMIDE MONOHYDRATE
  15. FENOTEROL HYDROBROMIDE\IPRATROPIUM BROMIDE [Concomitant]
     Active Substance: FENOTEROL HYDROBROMIDE\IPRATROPIUM BROMIDE
  16. MEGACE [Concomitant]
     Active Substance: MEGESTROL ACETATE
  17. EFTIL R [Concomitant]
  18. HALDOL [Concomitant]
     Active Substance: HALOPERIDOL
  19. RAMIPRIL [Concomitant]
     Active Substance: RAMIPRIL
  20. CAPTOPRIL [Concomitant]
     Active Substance: CAPTOPRIL

REACTIONS (7)
  - Neutropenia [Unknown]
  - Atrial fibrillation [Unknown]
  - Hypoalbuminaemia [Unknown]
  - Urine analysis abnormal [Unknown]
  - Anxiety [Unknown]
  - Hallucination [Unknown]
  - Hyperthyroidism [Unknown]
